FAERS Safety Report 20029913 (Version 3)
Quarter: 2022Q1

REPORT INFORMATION
  Report Type: Spontaneous
  Country: US (occurrence: US)
  Receive Date: 20211103
  Receipt Date: 20220329
  Transmission Date: 20220423
  Serious: No
  Sender: FDA-Public Use
  Company Number: US-SA-SAC20211101001089

PATIENT
  Age: 74 Year
  Sex: Male

DRUGS (20)
  1. AUBAGIO [Suspect]
     Active Substance: TERIFLUNOMIDE
     Indication: Multiple sclerosis
     Dosage: 1 DF QD
     Route: 048
  2. TRAMADOL HCL [Concomitant]
     Active Substance: TRAMADOL HYDROCHLORIDE
  3. TRAMADOL HCL [Concomitant]
     Active Substance: TRAMADOL HYDROCHLORIDE
  4. ETODOLAC [Concomitant]
     Active Substance: ETODOLAC
  5. ETODOLAC [Concomitant]
     Active Substance: ETODOLAC
  6. PANTOPRAZOLE SODIUM [Concomitant]
     Active Substance: PANTOPRAZOLE SODIUM
  7. PANTOPRAZOLE SODIUM [Concomitant]
     Active Substance: PANTOPRAZOLE SODIUM
  8. CITALOPRAM [Concomitant]
     Active Substance: CITALOPRAM HYDROBROMIDE
  9. AVONEX [Concomitant]
     Active Substance: INTERFERON BETA-1A
  10. AVONEX [Concomitant]
     Active Substance: INTERFERON BETA-1A
  11. VITAMINS NOS [Concomitant]
     Active Substance: VITAMINS
  12. LIPITOR [Concomitant]
     Active Substance: ATORVASTATIN CALCIUM
  13. LIPITOR [Concomitant]
     Active Substance: ATORVASTATIN CALCIUM
  14. AVODART [Concomitant]
     Active Substance: DUTASTERIDE
  15. AVODART [Concomitant]
     Active Substance: DUTASTERIDE
  16. VITAMIN D NOS [Concomitant]
     Active Substance: VITAMIN D NOS
  17. VITAMIN D NOS [Concomitant]
     Active Substance: VITAMIN D NOS
  18. CITALOPRAM [Concomitant]
     Active Substance: CITALOPRAM HYDROBROMIDE
  19. VITAMINS [Concomitant]
     Active Substance: VITAMINS
  20. GARLIC [Concomitant]
     Active Substance: GARLIC

REACTIONS (5)
  - Fall [Unknown]
  - Illness [Unknown]
  - Pain in extremity [Unknown]
  - Pain [Unknown]
  - Product dose omission issue [Unknown]
